FAERS Safety Report 17899884 (Version 1)
Quarter: 2020Q2

REPORT INFORMATION
  Report Type: Spontaneous
  Country: US (occurrence: US)
  Receive Date: 20200616
  Receipt Date: 20200616
  Transmission Date: 20200714
  Serious: No
  Sender: FDA-Public Use
  Company Number: US-COVIS PHARMA B.V.-2019COV00214

PATIENT
  Age: 77 Year
  Sex: Male
  Weight: 97.51 kg

DRUGS (3)
  1. SYNVASTIN [Concomitant]
  2. OMEPRAZOLE MAGNESIUM. [Suspect]
     Active Substance: OMEPRAZOLE MAGNESIUM
     Dosage: 20 MG, 2X/DAY
     Route: 048
  3. SYMBICORT [Suspect]
     Active Substance: BUDESONIDE\FORMOTEROL FUMARATE DIHYDRATE
     Indication: CHRONIC OBSTRUCTIVE PULMONARY DISEASE
     Dosage: 2 DOSAGE UNITS, 2X/DAY
     Dates: start: 201903, end: 201903

REACTIONS (4)
  - Weight increased [Unknown]
  - Dysphonia [Not Recovered/Not Resolved]
  - Body height decreased [Unknown]
  - Vertigo [Unknown]

NARRATIVE: CASE EVENT DATE: 20190421
